FAERS Safety Report 4276175-4 (Version None)
Quarter: 2004Q1

REPORT INFORMATION
  Report Type: 
  Country: None (occurrence: None)
  Receive Date: 20040121
  Receipt Date: 20031219
  Transmission Date: 20041129
  Serious: No
  Sender: FDA-Public Use
  Company Number: US-GLAXOSMITHKLINE-A0443756A

PATIENT
  Age: 33 Year
  Sex: Female

DRUGS (3)
  1. VALTREX [Suspect]
     Dosage: 500MG PER DAY
     Route: 048
     Dates: start: 20031001
  2. ZYRTEC-D 12 HOUR [Concomitant]
  3. MULTIVITAMIN [Concomitant]

REACTIONS (2)
  - ALOPECIA [None]
  - FUNGAL INFECTION [None]
